FAERS Safety Report 9376106 (Version 1)
Quarter: 2013Q2

REPORT INFORMATION
  Report Type: Spontaneous
  Country: US (occurrence: None)
  Receive Date: 20130628
  Receipt Date: 20130628
  Transmission Date: 20140414
  Serious: Yes (Other)
  Sender: FDA-Public Use
  Company Number: None

PATIENT
  Age: 64 None
  Sex: Female

DRUGS (10)
  1. CICLOPIROX [Suspect]
     Indication: ONYCHOMYCOSIS
     Dosage: 6.6 ML BOTTLE 1 ONCE A DAY AT BEDTIME BRUSH OVER TOENAIL FOR 6 NIGHTS
     Dates: start: 20130606, end: 20130611
  2. MIRALAX [Concomitant]
  3. CALCIUM [Concomitant]
  4. VITAMIN D 3 [Concomitant]
  5. VITAMIN C [Concomitant]
  6. FOLIC ACID [Concomitant]
  7. VITAMIN COD LIVER OIL [Concomitant]
  8. FLAX OIL [Concomitant]
  9. OMEGA 3 ACID [Concomitant]
  10. MAGNESIUM [Concomitant]

REACTIONS (1)
  - Blepharospasm [None]
